FAERS Safety Report 8493253 (Version 5)
Quarter: 2016Q3

REPORT INFORMATION
  Report Type: Spontaneous
  Country: NO (occurrence: NO)
  Receive Date: 20120404
  Receipt Date: 20160718
  Transmission Date: 20161109
  Serious: Yes (Hospitalization, Disabling, Other)
  Sender: FDA-Public Use
  Company Number: NO-GE HEALTHCARE MEDICAL DIAGNOSTICS-OSCN-NO-0603S-0069

PATIENT
  Age: 51 Year
  Sex: Female
  Weight: 40 kg

DRUGS (3)
  1. OMNISCAN [Suspect]
     Active Substance: GADODIAMIDE
     Indication: ISCHAEMIA
     Route: 042
     Dates: start: 20051118, end: 20051118
  2. OMNISCAN [Suspect]
     Active Substance: GADODIAMIDE
     Indication: DIAGNOSTIC PROCEDURE
  3. OMNISCAN [Suspect]
     Active Substance: GADODIAMIDE
     Indication: ABNORMAL LOSS OF WEIGHT

REACTIONS (20)
  - Lung squamous cell carcinoma stage I [Recovered/Resolved with Sequelae]
  - Lung adenocarcinoma stage 0 [Recovered/Resolved with Sequelae]
  - Paraesthesia [Not Recovered/Not Resolved]
  - Pain in extremity [Not Recovered/Not Resolved]
  - Serum ferritin decreased [Not Recovered/Not Resolved]
  - Haemoglobin decreased [Not Recovered/Not Resolved]
  - Skin atrophy [Not Recovered/Not Resolved]
  - Facial paralysis [Recovered/Resolved]
  - Paresis [Recovered/Resolved]
  - Visual impairment [Recovered/Resolved]
  - Dizziness [Not Recovered/Not Resolved]
  - Biopsy lung abnormal [Recovered/Resolved with Sequelae]
  - Overdose [Recovered/Resolved with Sequelae]
  - Eye pain [Not Recovered/Not Resolved]
  - Malaise [Recovered/Resolved]
  - Headache [Recovered/Resolved]
  - Eyelid ptosis [Recovered/Resolved]
  - Burning sensation [Recovered/Resolved]
  - Asthenia [Recovered/Resolved]
  - Blood count abnormal [Recovered/Resolved]

NARRATIVE: CASE EVENT DATE: 20051118
